FAERS Safety Report 20700000 (Version 1)
Quarter: 2022Q2

REPORT INFORMATION
  Report Type: Spontaneous
  Country: US (occurrence: None)
  Receive Date: 20220409
  Receipt Date: 20220409
  Transmission Date: 20220721
  Serious: Yes (Other)
  Sender: FDA-Public Use
  Company Number: None

PATIENT
  Age: 69 Year
  Sex: Female
  Weight: 52.2 kg

DRUGS (1)
  1. RESTASIS [Suspect]
     Active Substance: CYCLOSPORINE
     Indication: Basedow^s disease
     Dosage: OTHER QUANTITY : 30 DROP(S)?FREQUENCY : EVERY 12 HOURS?
     Route: 047
     Dates: start: 20220325, end: 20220405

REACTIONS (4)
  - Dizziness [None]
  - Arthralgia [None]
  - Myalgia [None]
  - Headache [None]

NARRATIVE: CASE EVENT DATE: 20220331
